FAERS Safety Report 19238029 (Version 1)
Quarter: 2021Q2

REPORT INFORMATION
  Report Type: Spontaneous
  Country: FR (occurrence: FR)
  Receive Date: 20210510
  Receipt Date: 20210510
  Transmission Date: 20210717
  Serious: Yes (Hospitalization)
  Sender: FDA-Public Use
  Company Number: FR-TEVA-2021-FR-1908493

PATIENT
  Age: 28 Year
  Sex: Male

DRUGS (3)
  1. HEROIN [Suspect]
     Active Substance: DIAMORPHINE
     Dosage: THERAPY START DATE AND END DATE : ASKU
     Route: 065
  2. DIAZEPAM. [Suspect]
     Active Substance: DIAZEPAM
     Dosage: IN THE LONG TERM , THERAPY START DATE AND END DATE : ASKU
     Route: 048
  3. COCAINE [Suspect]
     Active Substance: COCAINE
     Dosage: THERAPY START DATE AND END DATE : ASKU
     Route: 065

REACTIONS (4)
  - Pneumonia aspiration [Recovered/Resolved]
  - Respiratory depression [Recovered/Resolved]
  - Substance abuse [Recovered/Resolved]
  - Coma [Recovered/Resolved]

NARRATIVE: CASE EVENT DATE: 202101
